FAERS Safety Report 7034367-5 (Version None)
Quarter: 2010Q4

REPORT INFORMATION
  Report Type: 
  Country: None (occurrence: None)
  Receive Date: 20101008
  Receipt Date: 20100927
  Transmission Date: 20110411
  Serious: Yes (Other)
  Sender: FDA-Public Use
  Company Number: CA-JNJFOC-20100908764

PATIENT
  Age: 31 Year
  Sex: Female

DRUGS (1)
  1. REMICADE [Suspect]
     Indication: PRODUCT USED FOR UNKNOWN INDICATION
     Route: 042

REACTIONS (5)
  - ENDOMETRIOSIS [None]
  - HEPATIC CIRRHOSIS [None]
  - OSTEITIS CONDENSANS [None]
  - POLYCYSTIC OVARIES [None]
  - SYSTEMIC LUPUS ERYTHEMATOSUS [None]
